FAERS Safety Report 9247842 (Version 1)
Quarter: 2013Q1

REPORT INFORMATION
  Report Type: Spontaneous
  Country: US (occurrence: None)
  Receive Date: 20121130
  Receipt Date: 20121130
  Transmission Date: 20140127
  Serious: Yes (Other)
  Sender: FDA-Public Use
  Company Number: 344145

PATIENT
  Age: 65 Year
  Sex: Female
  Weight: 70.31 kg

DRUGS (3)
  1. NOVOLOG [Suspect]
     Indication: TYPE 1 DIABETES MELLITUS
     Dosage: 30 U, QD, SUBCUTANEOUS
     Route: 058
     Dates: start: 2000
  2. SYMLINPEN (PRAMLINTIDE ACETATE) [Concomitant]
  3. LANTUS (INSULIN GLARGINE) [Concomitant]

REACTIONS (3)
  - Hypoglycaemic unconsciousness [None]
  - Device misuse [None]
  - Inappropriate schedule of drug administration [None]
